FAERS Safety Report 13463882 (Version 1)
Quarter: 2017Q2

REPORT INFORMATION
  Report Type: Spontaneous
  Country: US (occurrence: US)
  Receive Date: 20170420
  Receipt Date: 20170420
  Transmission Date: 20170830
  Serious: Yes (Hospitalization, Other)
  Sender: FDA-Public Use
  Company Number: US-ROCHE-709303

PATIENT
  Age: 15 Year
  Sex: Male

DRUGS (1)
  1. ACCUTANE [Suspect]
     Active Substance: ISOTRETINOIN
     Indication: ACNE
     Route: 065
     Dates: start: 19901016, end: 199103

REACTIONS (5)
  - Inflammatory bowel disease [Unknown]
  - Crohn^s disease [Unknown]
  - Dry skin [Unknown]
  - Blood triglycerides increased [Unknown]
  - Oral herpes [Unknown]

NARRATIVE: CASE EVENT DATE: 19901108
